FAERS Safety Report 24910679 (Version 1)
Quarter: 2025Q1

REPORT INFORMATION
  Report Type: Spontaneous
  Country: FR (occurrence: FR)
  Receive Date: 20250131
  Receipt Date: 20250131
  Transmission Date: 20250408
  Serious: Yes (Hospitalization, Other)
  Sender: PFIZER
  Company Number: None

PATIENT
  Age: 1 Day
  Sex: Male

DRUGS (2)
  1. CYTARABINE [Suspect]
     Active Substance: CYTARABINE
     Indication: Acute myeloid leukaemia
     Route: 064
     Dates: start: 20241016
  2. DAUNORUBICIN HYDROCHLORIDE [Suspect]
     Active Substance: DAUNORUBICIN HYDROCHLORIDE
     Indication: Acute myeloid leukaemia
     Route: 064

REACTIONS (2)
  - Maternal exposure during pregnancy [Not Recovered/Not Resolved]
  - Periventricular leukomalacia [Not Recovered/Not Resolved]

NARRATIVE: CASE EVENT DATE: 20250113
